FAERS Safety Report 6973906-7 (Version None)
Quarter: 2010Q3

REPORT INFORMATION
  Report Type: 
  Country: None (occurrence: None)
  Receive Date: 20100907
  Receipt Date: 20100828
  Transmission Date: 20110219
  Serious: Yes (Other)
  Sender: FDA-Public Use
  Company Number: 2010SP042323

PATIENT
  Age: 47 Year
  Sex: Female
  Weight: 54 kg

DRUGS (4)
  1. CERAZETTE (DESOGESTREL /00754001/) [Suspect]
     Indication: CONTRACEPTION
     Dates: start: 20090101
  2. BETA-BLOCKER [Concomitant]
  3. THYROID [Concomitant]
  4. NITROFURANTOIN [Concomitant]

REACTIONS (4)
  - BLADDER DISORDER [None]
  - BLADDER NEOPLASM [None]
  - CYSTITIS NONINFECTIVE [None]
  - URINARY BLADDER HAEMORRHAGE [None]
